FAERS Safety Report 4973892-5 (Version None)
Quarter: 2006Q2

REPORT INFORMATION
  Report Type: 
  Country: None (occurrence: None)
  Receive Date: 20060410
  Receipt Date: 20060329
  Transmission Date: 20061013
  Serious: Yes (Other)
  Sender: FDA-Public Use
  Company Number: HQWYE675606APR06

PATIENT
  Age: 42 Year
  Sex: Male

DRUGS (11)
  1. PROTONIX [Suspect]
  2. PROTONIX [Suspect]
     Dosage: 40 MG 1X PER 1 TOT, ORAL INTRAVENOUS - SEE IMAGE
     Route: 042
  3. PROTONIX [Suspect]
     Dosage: 40 MG 1X PER 1 TOT, ORAL INTRAVENOUS - SEE IMAGE
     Route: 042
  4. MORPHINE SULFATE [Concomitant]
  5. ONDANSETRON [Concomitant]
  6. LORAZEPAM [Concomitant]
  7. DIPHENHYDRAMINE HCL [Concomitant]
  8. FENTANYL [Concomitant]
  9. RED BLOOD CELLS [Concomitant]
  10. PROMETHAZINE [Concomitant]
  11. GABAPENTIN [Concomitant]

REACTIONS (5)
  - ABDOMINAL PAIN [None]
  - BACTERIA URINE IDENTIFIED [None]
  - CATHETER SITE ERYTHEMA [None]
  - HAEMOGLOBIN DECREASED [None]
  - THROMBOCYTOPENIA [None]
